FAERS Safety Report 12181403 (Version 1)
Quarter: 2016Q1

REPORT INFORMATION
  Report Type: Spontaneous
  Country: US (occurrence: US)
  Receive Date: 20160315
  Receipt Date: 20160315
  Transmission Date: 20160526
  Serious: No
  Sender: FDA-Public Use
  Company Number: US-TEVA-641338USA

PATIENT
  Sex: Male

DRUGS (3)
  1. ADDERALL [Concomitant]
     Active Substance: AMPHETAMINE ASPARTATE\AMPHETAMINE SULFATE\DEXTROAMPHETAMINE SACCHARATE\DEXTROAMPHETAMINE SULFATE
  2. NUVIGIL [Suspect]
     Active Substance: ARMODAFINIL
  3. NUVIGIL [Suspect]
     Active Substance: ARMODAFINIL
     Dosage: CUT IN HALF

REACTIONS (2)
  - Therapeutic response unexpected [Unknown]
  - Drug effect increased [Unknown]
